FAERS Safety Report 16667438 (Version 1)
Quarter: 2019Q3

REPORT INFORMATION
  Report Type: Spontaneous
  Country: JP (occurrence: JP)
  Receive Date: 20190805
  Receipt Date: 20190805
  Transmission Date: 20191004
  Serious: Yes (Hospitalization, Other)
  Sender: FDA-Public Use
  Company Number: JP-IPCA LABORATORIES LIMITED-IPC-2019-JP-000992

PATIENT

DRUGS (4)
  1. LENVATINIB [Interacting]
     Active Substance: LENVATINIB
     Indication: HEPATOCELLULAR CARCINOMA
     Dosage: 8 MG, UNK
     Route: 065
  2. WARFARIN [Interacting]
     Active Substance: WARFARIN
     Dosage: 2 MG, UNK
     Route: 065
  3. LENVATINIB [Interacting]
     Active Substance: LENVATINIB
     Dosage: 4 MG, UNK
     Route: 065
  4. WARFARIN [Suspect]
     Active Substance: WARFARIN
     Indication: AORTIC VALVE REPLACEMENT
     Dosage: 3 MG, UNK
     Route: 065

REACTIONS (5)
  - International normalised ratio increased [Unknown]
  - Duodenal ulcer haemorrhage [Unknown]
  - Prothrombin time prolonged [Recovered/Resolved]
  - Palmar-plantar erythrodysaesthesia syndrome [Unknown]
  - Drug interaction [Unknown]
